FAERS Safety Report 7917740-X (Version None)
Quarter: 2011Q4

REPORT INFORMATION
  Report Type: 
  Country: None (occurrence: None)
  Receive Date: 20111116
  Receipt Date: 20110107
  Transmission Date: 20120403
  Serious: No
  Sender: FDA-Public Use
  Company Number: US-MYLANLABS-2011S1000790

PATIENT
  Sex: Female

DRUGS (2)
  1. ATENOLOL AND CHLORTHALIDONE [Suspect]
     Route: 048
     Dates: start: 20040101, end: 20110103
  2. LIPITOR [Concomitant]

REACTIONS (2)
  - ARTHRALGIA [None]
  - GOUT [None]
